FAERS Safety Report 9849805 (Version 1)
Quarter: 2014Q1

REPORT INFORMATION
  Report Type: Spontaneous
  Country: AU (occurrence: AU)
  Receive Date: 20140128
  Receipt Date: 20140128
  Transmission Date: 20141002
  Serious: Yes (Other)
  Sender: FDA-Public Use
  Company Number: AU-MYLANLABS-2014S1000912

PATIENT
  Age: 50 Year
  Sex: Male

DRUGS (2)
  1. LOVAN [Suspect]
     Indication: ANXIETY
  2. LOVAN [Suspect]
     Indication: DEPRESSION

REACTIONS (3)
  - Hallucination [Not Recovered/Not Resolved]
  - Anxiety [Not Recovered/Not Resolved]
  - Wrong drug administered [Unknown]
